FAERS Safety Report 5154670-3 (Version None)
Quarter: 2006Q4

REPORT INFORMATION
  Report Type: 
  Country: None (occurrence: None)
  Receive Date: 20061113
  Receipt Date: 20061025
  Transmission Date: 20070319
  Serious: Yes (Other)
  Sender: FDA-Public Use
  Company Number: 8019903

PATIENT

DRUGS (1)
  1. THEOPHYLLINE [Suspect]

REACTIONS (4)
  - DRUG LEVEL ABOVE THERAPEUTIC [None]
  - INTUBATION [None]
  - PYREXIA [None]
  - STATUS EPILEPTICUS [None]
